FAERS Safety Report 9938685 (Version 1)
Quarter: 2014Q1

REPORT INFORMATION
  Report Type: Spontaneous
  Country: US (occurrence: US)
  Receive Date: 20140303
  Receipt Date: 20140303
  Transmission Date: 20141002
  Serious: No
  Sender: FDA-Public Use
  Company Number: US-009507513-1402USA012351

PATIENT
  Sex: Male

DRUGS (2)
  1. COZAAR [Suspect]
     Indication: BLOOD PRESSURE INCREASED
     Dosage: UNK
     Route: 048
     Dates: start: 201208
  2. PRINIVIL [Suspect]
     Dosage: UNK
     Route: 048
     Dates: start: 201202, end: 201308

REACTIONS (2)
  - Drug ineffective [Unknown]
  - Cough [Recovered/Resolved]
